FAERS Safety Report 20969757 (Version 1)
Quarter: 2022Q2

REPORT INFORMATION
  Report Type: Report from Study
  Country: US (occurrence: US)
  Receive Date: 20220616
  Receipt Date: 20220616
  Transmission Date: 20220721
  Serious: Yes (Hospitalization)
  Sender: FDA-Public Use
  Company Number: US-JNJFOC-20220517681

PATIENT
  Age: 15 Month
  Sex: Female
  Weight: 9.9 kg

DRUGS (7)
  1. BOSENTAN [Suspect]
     Active Substance: BOSENTAN
     Indication: Pulmonary arterial hypertension
     Dosage: TRACLEER DOSE TAKED IN 5 TO 10ML OF WATER EVERY MORNING. GIVE 1/2 (16MG) TABLET BY MOUTH TWICE DAILY
     Route: 048
     Dates: start: 20220110
  2. BOSENTAN [Suspect]
     Active Substance: BOSENTAN
     Route: 048
  3. SILDENAFIL CITRATE [Concomitant]
     Active Substance: SILDENAFIL CITRATE
  4. LOSARTAN [Concomitant]
     Active Substance: LOSARTAN
  5. BUDESONIDE [Concomitant]
     Active Substance: BUDESONIDE
  6. LEVALBUTEROL [Concomitant]
     Active Substance: LEVALBUTEROL
  7. AZITHROMYCIN [Concomitant]
     Active Substance: AZITHROMYCIN

REACTIONS (1)
  - Agitation [Unknown]
